FAERS Safety Report 7999495-6 (Version None)
Quarter: 2011Q4

REPORT INFORMATION
  Report Type: 
  Country: None (occurrence: None)
  Receive Date: 20111221
  Receipt Date: 20111214
  Transmission Date: 20120403
  Serious: No
  Sender: FDA-Public Use
  Company Number: US-PFIZER INC-2011305216

PATIENT
  Sex: Female

DRUGS (4)
  1. XALATAN [Suspect]
     Dosage: UNK
  2. AZOPT [Suspect]
     Indication: GLAUCOMA
     Dosage: 1 GTT, 2X/DAY (LEFT EYE)
     Route: 047
  3. ISTALOL [Suspect]
     Dosage: UNK
  4. ALPHAGAN [Suspect]
     Dosage: UNK

REACTIONS (1)
  - ALOPECIA [None]
